FAERS Safety Report 7957886-3 (Version None)
Quarter: 2011Q4

REPORT INFORMATION
  Report Type: 
  Country: None (occurrence: None)
  Receive Date: 20111205
  Receipt Date: 20111123
  Transmission Date: 20120403
  Serious: Yes (Hospitalization)
  Sender: FDA-Public Use
  Company Number: US-ELI_LILLY_AND_COMPANY-US201111008474

PATIENT
  Sex: Female

DRUGS (8)
  1. FORTEO [Suspect]
     Indication: OSTEOPOROSIS
     Dosage: 20 UG, QD
     Route: 065
     Dates: start: 20101101
  2. LASIX [Concomitant]
  3. EVISTA [Suspect]
     Indication: OSTEOPOROSIS
     Dosage: 60 MG, QD
     Route: 065
  4. ALENDRONATE SODIUM [Concomitant]
     Indication: OSTEOPOROSIS
  5. OMEPRAZOLE [Concomitant]
  6. TOPRAL                             /00586501/ [Concomitant]
  7. SYNTHROID [Concomitant]
  8. LOSARTAN POTASSIUM [Concomitant]

REACTIONS (4)
  - DYSPHONIA [None]
  - INFECTION [None]
  - GAIT DISTURBANCE [None]
  - COMMUNICATION DISORDER [None]
